FAERS Safety Report 24992362 (Version 4)
Quarter: 2025Q4

REPORT INFORMATION
  Report Type: Spontaneous
  Country: US (occurrence: US)
  Receive Date: 20250220
  Receipt Date: 20251226
  Transmission Date: 20260118
  Serious: Yes (Other)
  Sender: BRISTOL-MYERS SQUIBB COMPANY
  Company Number: US-BRISTOL-MYERS SQUIBB COMPANY-2025-021631

PATIENT
  Age: 62 Year
  Sex: Male

DRUGS (2)
  1. REVLIMID [Suspect]
     Active Substance: LENALIDOMIDE
     Indication: Plasma cell myeloma
     Route: 048
  2. REVLIMID [Suspect]
     Active Substance: LENALIDOMIDE
     Route: 048

REACTIONS (9)
  - Constipation [Unknown]
  - Diarrhoea [Not Recovered/Not Resolved]
  - Muscle atrophy [Unknown]
  - Gastrointestinal disorder [Unknown]
  - Fatigue [Unknown]
  - Pain [Unknown]
  - Thrombosis [Unknown]
  - Depression [Unknown]
  - Extra dose administered [Unknown]
